FAERS Safety Report 22178703 (Version 1)
Quarter: 2023Q2

REPORT INFORMATION
  Report Type: Spontaneous
  Country: IT (occurrence: IT)
  Receive Date: 20230405
  Receipt Date: 20230405
  Transmission Date: 20230722
  Serious: Yes (Death, Other)
  Sender: FDA-Public Use
  Company Number: IT-SUN PHARMACEUTICAL INDUSTRIES LTD-2023RR-384161

PATIENT
  Age: 54 Year
  Sex: Female

DRUGS (6)
  1. GEMCITABINE [Suspect]
     Active Substance: GEMCITABINE
     Indication: Uterine leiomyosarcoma
     Dosage: UNK
     Route: 065
     Dates: start: 202012
  2. TRABECTEDIN [Suspect]
     Active Substance: TRABECTEDIN
     Indication: Uterine leiomyosarcoma
     Dosage: 1.5 MG/M^2 EVERY 3 WEEKS
     Route: 065
     Dates: start: 201901, end: 202012
  3. TRABECTEDIN [Suspect]
     Active Substance: TRABECTEDIN
     Dosage: 1.2 MG/M^2
     Route: 065
  4. PAZOPANIB [Suspect]
     Active Substance: PAZOPANIB
     Indication: Uterine leiomyosarcoma
     Dosage: UNK
     Route: 065
  5. DOXORUBICIN [Suspect]
     Active Substance: DOXORUBICIN
     Indication: Uterine leiomyosarcoma
     Dosage: 75 MG/M^2
     Route: 065
     Dates: start: 201711
  6. DACARBAZINE [Suspect]
     Active Substance: DACARBAZINE
     Indication: Uterine leiomyosarcoma
     Dosage: 750 MG/M^2 PER CYCLE, EVERY 3 WEEKS
     Route: 042
     Dates: start: 201711

REACTIONS (11)
  - Disease progression [Fatal]
  - Neutropenia [Unknown]
  - Anaemia [Unknown]
  - Thrombocytopenia [Unknown]
  - Blood creatinine increased [Unknown]
  - Therapeutic product effect incomplete [Unknown]
  - Leiomyosarcoma metastatic [Unknown]
  - Toxicity to various agents [Unknown]
  - Blood bilirubin increased [Unknown]
  - Enzyme activity increased [Unknown]
  - Pneumothorax [Unknown]
